FAERS Safety Report 8914879 (Version 1)
Quarter: 2012Q4

REPORT INFORMATION
  Report Type: 
  Country: US (occurrence: US)
  Receive Date: 20121119
  Receipt Date: 20121119
  Transmission Date: 20130627
  Serious: Yes (Other)
  Sender: FDA-Public Use
  Company Number: US-BAYER-2012-120071

PATIENT
  Age: 60 Year
  Sex: Female
  Weight: 56.69 kg

DRUGS (1)
  1. ALKA-SELTZER XTRA STRENGTH [Suspect]
     Indication: GENERAL BODY PAIN
     Dosage: 2 DF, ONCE
     Route: 048
     Dates: start: 20121114, end: 20121114

REACTIONS (1)
  - Tinnitus [Not Recovered/Not Resolved]
